FAERS Safety Report 17038081 (Version 3)
Quarter: 2020Q2

REPORT INFORMATION
  Report Type: Report from Study
  Country: PH (occurrence: PH)
  Receive Date: 20191115
  Receipt Date: 20200409
  Transmission Date: 20200713
  Serious: Yes (Hospitalization, Other)
  Sender: FDA-Public Use
  Company Number: PH-ASTRAZENECA-2019SF02103

PATIENT
  Age: 24553 Day
  Sex: Male

DRUGS (57)
  1. CARBOPLATIN. [Suspect]
     Active Substance: CARBOPLATIN
     Indication: NON-SMALL CELL LUNG CANCER
     Dosage: 2.0 AUC
     Route: 065
     Dates: start: 20190625, end: 20190625
  2. CARBOPLATIN. [Suspect]
     Active Substance: CARBOPLATIN
     Indication: NON-SMALL CELL LUNG CANCER
     Dosage: 2.0 AUC
     Route: 065
     Dates: start: 20190701, end: 20190701
  3. METOCLOPRAMIDE. [Concomitant]
     Active Substance: METOCLOPRAMIDE
     Indication: PREMEDICATION
     Dosage: 20.0MG ONCE/SINGLE ADMINISTRATION
     Route: 042
     Dates: start: 20190710, end: 20190710
  4. DEXAMETHASONE. [Concomitant]
     Active Substance: DEXAMETHASONE
     Indication: INFLAMMATION
     Dosage: 20.0MG ONCE/SINGLE ADMINISTRATION
     Route: 042
     Dates: start: 20190606, end: 20190606
  5. DEXAMETHASONE. [Concomitant]
     Active Substance: DEXAMETHASONE
     Indication: INFLAMMATION
     Dosage: 20.0MG ONCE/SINGLE ADMINISTRATION
     Route: 042
     Dates: start: 20190701, end: 20190701
  6. FILGRASTIM [Concomitant]
     Active Substance: FILGRASTIM
     Indication: FEBRILE NEUTROPENIA
     Dosage: 300.0UG ONCE/SINGLE ADMINISTRATION
     Route: 058
     Dates: start: 20190715, end: 20190725
  7. ONDANSETRON [Concomitant]
     Active Substance: ONDANSETRON
     Indication: PREMEDICATION
     Dosage: 8.0MG ONCE/SINGLE ADMINISTRATION
     Route: 042
     Dates: start: 20190613, end: 20190613
  8. ONDANSETRON [Concomitant]
     Active Substance: ONDANSETRON
     Indication: PREMEDICATION
     Dosage: 8.0MG ONCE/SINGLE ADMINISTRATION
     Route: 042
     Dates: start: 20190619, end: 20190619
  9. ONDANSETRON [Concomitant]
     Active Substance: ONDANSETRON
     Indication: PREMEDICATION
     Dosage: 8.0MG ONCE/SINGLE ADMINISTRATION
     Route: 042
     Dates: start: 20190625, end: 20190625
  10. ONDANSETRON [Concomitant]
     Active Substance: ONDANSETRON
     Indication: PREMEDICATION
     Dosage: 8.0MG ONCE/SINGLE ADMINISTRATION
     Route: 042
     Dates: start: 20190710, end: 20190710
  11. METOCLOPRAMIDE. [Concomitant]
     Active Substance: METOCLOPRAMIDE
     Indication: PREMEDICATION
     Dosage: 20.0MG ONCE/SINGLE ADMINISTRATION
     Route: 042
     Dates: start: 20190606, end: 20190606
  12. METOCLOPRAMIDE. [Concomitant]
     Active Substance: METOCLOPRAMIDE
     Indication: PREMEDICATION
     Dosage: 10.0MG ONCE/SINGLE ADMINISTRATION
     Route: 048
     Dates: start: 20190613, end: 20190617
  13. RANITIDINE. [Concomitant]
     Active Substance: RANITIDINE
     Indication: PREMEDICATION
     Dosage: 50.0MG ONCE/SINGLE ADMINISTRATION
     Route: 042
     Dates: start: 20190606, end: 20190606
  14. DEXAMETHASONE. [Concomitant]
     Active Substance: DEXAMETHASONE
     Indication: INFLAMMATION
     Dosage: 20.0MG ONCE/SINGLE ADMINISTRATION
     Route: 042
     Dates: start: 20190710, end: 20190710
  15. DIPHENHYDRAMINE. [Concomitant]
     Active Substance: DIPHENHYDRAMINE
     Indication: HYPERSENSITIVITY
     Dosage: 50.0MG ONCE/SINGLE ADMINISTRATION
     Route: 042
     Dates: start: 20190701, end: 20190701
  16. DIPHENHYDRAMINE. [Concomitant]
     Active Substance: DIPHENHYDRAMINE
     Indication: HYPERSENSITIVITY
     Dosage: 50.0MG ONCE/SINGLE ADMINISTRATION
     Route: 042
     Dates: start: 20190710, end: 20190710
  17. OMEPRAZOLE. [Concomitant]
     Active Substance: OMEPRAZOLE
     Indication: PROPHYLAXIS AGAINST GASTROINTESTINAL ULCER
     Route: 048
     Dates: start: 20190625, end: 20190629
  18. OMEPRAZOLE. [Concomitant]
     Active Substance: OMEPRAZOLE
     Indication: PROPHYLAXIS AGAINST GASTROINTESTINAL ULCER
     Route: 048
     Dates: start: 20190701, end: 20190705
  19. DURVALUMAB. [Suspect]
     Active Substance: DURVALUMAB
     Indication: NON-SMALL CELL LUNG CANCER
     Dosage: 1500.0MG ONCE/SINGLE ADMINISTRATION
     Route: 042
     Dates: start: 20190701, end: 20190701
  20. DEXAMETHASONE. [Concomitant]
     Active Substance: DEXAMETHASONE
     Indication: INFLAMMATION
     Dosage: 20.0MG ONCE/SINGLE ADMINISTRATION
     Route: 042
     Dates: start: 20190613, end: 20190613
  21. DIPHENHYDRAMINE. [Concomitant]
     Active Substance: DIPHENHYDRAMINE
     Indication: HYPERSENSITIVITY
     Dosage: 50.0MG ONCE/SINGLE ADMINISTRATION
     Route: 042
     Dates: start: 20190606, end: 20190606
  22. DIPHENHYDRAMINE. [Concomitant]
     Active Substance: DIPHENHYDRAMINE
     Indication: HYPERSENSITIVITY
     Dosage: 50.0MG ONCE/SINGLE ADMINISTRATION
     Route: 042
     Dates: start: 20190625, end: 20190625
  23. FILGRASTIM [Concomitant]
     Active Substance: FILGRASTIM
     Indication: FEBRILE NEUTROPENIA
     Dosage: 300.0UG ONCE/SINGLE ADMINISTRATION
     Route: 058
     Dates: start: 20190708, end: 20190708
  24. RADIATION THERAPY [Suspect]
     Active Substance: RADIATION THERAPY
     Indication: NON-SMALL CELL LUNG CANCER
     Dosage: 2 GY, 26 FRACTION DOSES
     Route: 065
     Dates: start: 20190606, end: 20190612
  25. PACLITAXEL. [Suspect]
     Active Substance: PACLITAXEL
     Indication: NON-SMALL CELL LUNG CANCER
     Dosage: 87.0MG ONCE/SINGLE ADMINISTRATION
     Route: 065
     Dates: start: 20190606, end: 20190606
  26. ONDANSETRON [Concomitant]
     Active Substance: ONDANSETRON
     Indication: PREMEDICATION
     Dosage: 8.0MG ONCE/SINGLE ADMINISTRATION
     Route: 042
     Dates: start: 20190606, end: 20190606
  27. METOCLOPRAMIDE. [Concomitant]
     Active Substance: METOCLOPRAMIDE
     Indication: PREMEDICATION
     Dosage: 20.0MG ONCE/SINGLE ADMINISTRATION
     Route: 042
     Dates: start: 20190701, end: 20190701
  28. RANITIDINE. [Concomitant]
     Active Substance: RANITIDINE
     Indication: PREMEDICATION
     Dosage: 50.0MG ONCE/SINGLE ADMINISTRATION
     Route: 042
     Dates: start: 20190619, end: 20190619
  29. RANITIDINE. [Concomitant]
     Active Substance: RANITIDINE
     Indication: PREMEDICATION
     Dosage: 50.0MG ONCE/SINGLE ADMINISTRATION
     Route: 042
     Dates: start: 20190625, end: 20190625
  30. RANITIDINE. [Concomitant]
     Active Substance: RANITIDINE
     Indication: PREMEDICATION
     Dosage: 50.0MG ONCE/SINGLE ADMINISTRATION
     Route: 042
     Dates: start: 20190710, end: 20190710
  31. DIPHENHYDRAMINE. [Concomitant]
     Active Substance: DIPHENHYDRAMINE
     Indication: HYPERSENSITIVITY
     Dosage: 50.0MG ONCE/SINGLE ADMINISTRATION
     Route: 042
     Dates: start: 20190619, end: 20190619
  32. AMLIFE [Concomitant]
     Indication: ESSENTIAL HYPERTENSION
     Route: 048
     Dates: end: 20190909
  33. CARBOPLATIN. [Suspect]
     Active Substance: CARBOPLATIN
     Indication: NON-SMALL CELL LUNG CANCER
     Dosage: 2.0 AUC
     Route: 065
     Dates: start: 20190606, end: 20190606
  34. PACLITAXEL. [Suspect]
     Active Substance: PACLITAXEL
     Indication: NON-SMALL CELL LUNG CANCER
     Dosage: 87.0MG ONCE/SINGLE ADMINISTRATION
     Route: 065
     Dates: start: 20190613, end: 20190613
  35. PACLITAXEL. [Suspect]
     Active Substance: PACLITAXEL
     Indication: NON-SMALL CELL LUNG CANCER
     Dosage: 86.0MG ONCE/SINGLE ADMINISTRATION
     Route: 065
     Dates: start: 20190625, end: 20190625
  36. PACLITAXEL. [Suspect]
     Active Substance: PACLITAXEL
     Indication: NON-SMALL CELL LUNG CANCER
     Dosage: 86.0MG ONCE/SINGLE ADMINISTRATION
     Route: 065
     Dates: start: 20190701, end: 20190701
  37. METOCLOPRAMIDE. [Concomitant]
     Active Substance: METOCLOPRAMIDE
     Indication: PREMEDICATION
     Dosage: 20.0MG ONCE/SINGLE ADMINISTRATION
     Route: 042
     Dates: start: 20190613, end: 20190613
  38. RANITIDINE. [Concomitant]
     Active Substance: RANITIDINE
     Indication: PREMEDICATION
     Dosage: 50.0MG ONCE/SINGLE ADMINISTRATION
     Route: 042
     Dates: start: 20190701, end: 20190701
  39. DEXAMETHASONE. [Concomitant]
     Active Substance: DEXAMETHASONE
     Indication: INFLAMMATION
     Dosage: 20.0MG ONCE/SINGLE ADMINISTRATION
     Route: 042
     Dates: start: 20190619, end: 20190619
  40. CARBOPLATIN. [Suspect]
     Active Substance: CARBOPLATIN
     Indication: NON-SMALL CELL LUNG CANCER
     Dosage: 2.0 AUC
     Route: 065
     Dates: start: 20190710, end: 20190710
  41. METOCLOPRAMIDE. [Concomitant]
     Active Substance: METOCLOPRAMIDE
     Indication: PREMEDICATION
     Dosage: 10.0MG ONCE/SINGLE ADMINISTRATION
     Route: 048
     Dates: start: 20190701, end: 20190705
  42. FORTIFER FA [Concomitant]
     Indication: ANAEMIA
     Route: 048
     Dates: start: 20190606
  43. OMEPRAZOLE. [Concomitant]
     Active Substance: OMEPRAZOLE
     Indication: PROPHYLAXIS AGAINST GASTROINTESTINAL ULCER
     Route: 048
     Dates: start: 20190613, end: 20190617
  44. CARBOPLATIN. [Suspect]
     Active Substance: CARBOPLATIN
     Indication: NON-SMALL CELL LUNG CANCER
     Dosage: 2.0 AUC
     Route: 065
     Dates: start: 20190613, end: 20190613
  45. CARBOPLATIN. [Suspect]
     Active Substance: CARBOPLATIN
     Indication: NON-SMALL CELL LUNG CANCER
     Dosage: 2.0 AUC
     Route: 065
     Dates: start: 20190619, end: 20190619
  46. PACLITAXEL. [Suspect]
     Active Substance: PACLITAXEL
     Indication: NON-SMALL CELL LUNG CANCER
     Dosage: 86.0MG ONCE/SINGLE ADMINISTRATION
     Route: 065
     Dates: start: 20190619, end: 20190619
  47. PACLITAXEL. [Suspect]
     Active Substance: PACLITAXEL
     Indication: NON-SMALL CELL LUNG CANCER
     Dosage: 86.0MG ONCE/SINGLE ADMINISTRATION
     Route: 065
     Dates: start: 20190710, end: 20190710
  48. RANITIDINE. [Concomitant]
     Active Substance: RANITIDINE
     Indication: PREMEDICATION
     Dosage: 50.0MG ONCE/SINGLE ADMINISTRATION
     Route: 042
     Dates: start: 20190613, end: 20190613
  49. DEXAMETHASONE. [Concomitant]
     Active Substance: DEXAMETHASONE
     Indication: INFLAMMATION
     Route: 048
     Dates: start: 20190605, end: 20190606
  50. DEXAMETHASONE. [Concomitant]
     Active Substance: DEXAMETHASONE
     Indication: INFLAMMATION
     Dosage: 20.0MG ONCE/SINGLE ADMINISTRATION
     Route: 042
     Dates: start: 20190625, end: 20190625
  51. DIPHENHYDRAMINE. [Concomitant]
     Active Substance: DIPHENHYDRAMINE
     Indication: HYPERSENSITIVITY
     Dosage: 50.0MG ONCE/SINGLE ADMINISTRATION
     Route: 042
     Dates: start: 20190613, end: 20190613
  52. CETIRIZINE [Concomitant]
     Active Substance: CETIRIZINE HYDROCHLORIDE
     Indication: DERMATITIS ACNEIFORM
     Route: 048
     Dates: start: 20190708, end: 20190714
  53. DURVALUMAB. [Suspect]
     Active Substance: DURVALUMAB
     Indication: NON-SMALL CELL LUNG CANCER
     Dosage: 1500.0MG ONCE/SINGLE ADMINISTRATION
     Route: 042
     Dates: start: 20190606, end: 20190606
  54. METOCLOPRAMIDE. [Concomitant]
     Active Substance: METOCLOPRAMIDE
     Indication: PREMEDICATION
     Dosage: 10.0MG ONCE/SINGLE ADMINISTRATION
     Route: 048
     Dates: start: 20190606, end: 20190610
  55. METOCLOPRAMIDE. [Concomitant]
     Active Substance: METOCLOPRAMIDE
     Indication: PREMEDICATION
     Dosage: 20.0MG ONCE/SINGLE ADMINISTRATION
     Route: 042
     Dates: start: 20190619, end: 20190619
  56. METOCLOPRAMIDE. [Concomitant]
     Active Substance: METOCLOPRAMIDE
     Indication: PREMEDICATION
     Dosage: 20.0MG ONCE/SINGLE ADMINISTRATION
     Route: 042
     Dates: start: 20190625, end: 20190625
  57. OMEPRAZOLE. [Concomitant]
     Active Substance: OMEPRAZOLE
     Indication: PROPHYLAXIS AGAINST GASTROINTESTINAL ULCER
     Route: 048
     Dates: start: 20190606, end: 20190610

REACTIONS (2)
  - Toxic epidermal necrolysis [Recovered/Resolved]
  - Febrile neutropenia [Recovered/Resolved]

NARRATIVE: CASE EVENT DATE: 20190708
